FAERS Safety Report 6318398-6 (Version None)
Quarter: 2009Q3

REPORT INFORMATION
  Report Type: 
  Country: None (occurrence: None)
  Receive Date: 20090821
  Receipt Date: 20090811
  Transmission Date: 20100115
  Serious: Yes (Other)
  Sender: FDA-Public Use
  Company Number: CA-ELI_LILLY_AND_COMPANY-CA200908002863

PATIENT
  Age: 16 Year
  Sex: Female

DRUGS (6)
  1. XIGRIS [Suspect]
     Indication: SEPTIC SHOCK
     Dosage: UNK, UNK
     Route: 042
  2. ANTIBIOTICS [Concomitant]
     Indication: INFECTIOUS MONONUCLEOSIS
  3. CORTICOSTEROIDS [Concomitant]
  4. HAEMODIALYTICS AND HAEMOFILTRATES [Concomitant]
     Indication: RENAL FAILURE ACUTE
  5. OXYGEN [Concomitant]
     Indication: RESPIRATORY FAILURE
  6. HEPARIN SODIUM [Concomitant]
     Indication: ANTICOAGULANT THERAPY
     Route: 050

REACTIONS (1)
  - THROMBOCYTOPENIA [None]
